FAERS Safety Report 9153585 (Version 1)
Quarter: 2013Q1

REPORT INFORMATION
  Report Type: Spontaneous
  Country: ES (occurrence: None)
  Receive Date: 20130204
  Receipt Date: 20130204
  Transmission Date: 20140127
  Serious: Yes (Other)
  Sender: FDA-Public Use
  Company Number: FK201300298

PATIENT
  Age: 66 Year
  Sex: Female

DRUGS (5)
  1. FLUDARABINE [Suspect]
     Indication: CHRONIC LYMPHOCYTIC LEUKAEMIA
     Dosage: UNKNOWN, SECOND EXPOSURE TO PURINE ANALOG, UNKNOWN?
  2. CLADRIBINE [Suspect]
     Indication: CHRONIC LYMPHOCYTIC LEUKAEMIA
     Dosage: UNKNOWN, FIRST EXPOSURE TO PURINE ANALOG, UNKNOWN?
  3. MITOXANTRONE [Suspect]
     Indication: CHRONIC LYMPHOCYTIC LEUKAEMIA
     Dosage: UNKNOWN, FIRST EXPOSURE, UNKNOWN
  4. CYCLOPHOSPHAMIDE [Suspect]
     Indication: CHRONIC LYMPHOCYTIC LEUKAEMIA
     Dosage: UNKNOWN, FIRST EXPOSURE, UNKNOWN
  5. RITUXIMAB (RITUXIMAB) [Suspect]
     Indication: CHRONIC LYMPHOCYTIC LEUKAEMIA
     Dosage: UNKNOWN, FIRST EXPOSURE, UNKNOWN

REACTIONS (1)
  - Refractory cytopenia with multilineage dysplasia [None]
